FAERS Safety Report 7942279-5 (Version None)
Quarter: 2011Q4

REPORT INFORMATION
  Report Type: 
  Country: None (occurrence: None)
  Receive Date: 20111128
  Receipt Date: 20110909
  Transmission Date: 20120403
  Serious: No
  Sender: FDA-Public Use
  Company Number: US-ABBOTT-11P-163-0853205-00

PATIENT
  Sex: Male

DRUGS (3)
  1. ANDROGEL [Suspect]
     Indication: BLOOD TESTOSTERONE DECREASED
     Route: 061
     Dates: start: 20110622
  2. ANDROGEL [Suspect]
     Route: 061
  3. ANDROGEL [Suspect]
     Route: 061

REACTIONS (1)
  - BLOOD TESTOSTERONE ABNORMAL [None]
